FAERS Safety Report 7494254-5 (Version None)
Quarter: 2011Q2

REPORT INFORMATION
  Report Type: 
  Country: None (occurrence: None)
  Receive Date: 20110520
  Receipt Date: 20110516
  Transmission Date: 20111010
  Serious: Yes (Hospitalization)
  Sender: FDA-Public Use
  Company Number: FR-BRISTOL-MYERS SQUIBB COMPANY-15752959

PATIENT
  Age: 93 Year
  Sex: Female

DRUGS (4)
  1. BISOPROLOL FUMARATE [Concomitant]
  2. TRAMADOL HCL [Suspect]
     Route: 048
     Dates: start: 20101225, end: 20101227
  3. PLAVIX [Concomitant]
  4. IRBESARTAN AND HYDROCHLOROTHIAZIDE [Suspect]
     Route: 048
     Dates: end: 20101227

REACTIONS (3)
  - HYPONATRAEMIA [None]
  - FALL [None]
  - FRACTURE [None]
